FAERS Safety Report 5101903-5 (Version None)
Quarter: 2006Q3

REPORT INFORMATION
  Report Type: 
  Country: None (occurrence: None)
  Receive Date: 20060907
  Receipt Date: 20060830
  Transmission Date: 20061208
  Serious: Yes (Congenital Anomaly)
  Sender: FDA-Public Use
  Company Number: 008372

PATIENT
  Sex: Male

DRUGS (3)
  1. DIDANOSINE (DIDANOSINE) DELAYED REELASE CAPSULES, 200MG [Suspect]
     Dosage: TRANSPLACENTAL
     Route: 064
  2. NELFINAVIR(NELFINAVIR) [Suspect]
     Dosage: TRANSPLACENTAL
     Route: 064
  3. STAVUDINE [Suspect]
     Dosage: TRANSPLACENTAL
     Route: 064

REACTIONS (2)
  - DRUG EXPOSURE DURING PREGNANCY [None]
  - HYPOSPADIAS [None]
